FAERS Safety Report 9753763 (Version 2)
Quarter: 2013Q4

REPORT INFORMATION
  Report Type: Spontaneous
  Country: US (occurrence: US)
  Receive Date: 20131213
  Receipt Date: 20131213
  Transmission Date: 20140711
  Serious: No
  Sender: FDA-Public Use
  Company Number: US-GILEAD-2010-0026642

PATIENT
  Sex: Female

DRUGS (9)
  1. LETAIRIS [Suspect]
     Indication: PULMONARY ARTERIAL HYPERTENSION
     Route: 048
     Dates: start: 20090227
  2. PREDNISONE [Concomitant]
  3. ASTELIN NS [Concomitant]
  4. FLONASE NS [Concomitant]
  5. LEVOXYL [Concomitant]
  6. SILDENAFIL [Concomitant]
  7. PROTONIX [Concomitant]
  8. COUMADIN [Concomitant]
  9. CELEXA [Concomitant]

REACTIONS (1)
  - Nasal congestion [Recovering/Resolving]
